FAERS Safety Report 12805377 (Version 1)
Quarter: 2016Q4

REPORT INFORMATION
  Report Type: Other
  Country: US (occurrence: US)
  Receive Date: 20161004
  Receipt Date: 20161004
  Transmission Date: 20170207
  Serious: No
  Sender: FDA-Public Use
  Company Number: US-NOVEL LABORATORIES, INC-2016-04041

PATIENT
  Age: 29 Year
  Sex: Female
  Weight: 115 kg

DRUGS (11)
  1. MORPHINE [Suspect]
     Active Substance: MORPHINE
     Dosage: 15 MG
     Route: 048
  2. MORPHINE [Suspect]
     Active Substance: MORPHINE
     Dosage: 15 MG
     Route: 048
  3. KETAMINE [Concomitant]
     Active Substance: KETAMINE
     Indication: PAIN
     Dosage: 5 MICROGRAM/KG/MIN (RANGE RECEIVED 2.5-5 MICROGRAM /KG/MIN)
     Route: 065
  4. CYCLOBENZAPRINE [Concomitant]
     Active Substance: CYCLOBENZAPRINE
     Indication: PAIN
     Route: 065
  5. MORPHINE [Suspect]
     Active Substance: MORPHINE
     Indication: PAIN
     Dosage: 35 MG
     Route: 042
  6. OXYCODONE [Suspect]
     Active Substance: OXYCODONE
     Indication: PAIN
     Dosage: 10 MG
     Route: 048
  7. HYDROMORPHONE [Suspect]
     Active Substance: HYDROMORPHONE
     Indication: PAIN
     Dosage: 1 MG
     Route: 042
  8. FENTANYL. [Suspect]
     Active Substance: FENTANYL
     Indication: PAIN
     Dosage: 350 MICROGRAM
     Route: 042
  9. MORPHINE [Suspect]
     Active Substance: MORPHINE
     Indication: PAIN
     Route: 048
  10. VENLAFAXINE [Concomitant]
     Active Substance: VENLAFAXINE HYDROCHLORIDE
     Indication: MAJOR DEPRESSION
     Route: 048
  11. MORPHINE [Suspect]
     Active Substance: MORPHINE
     Route: 048

REACTIONS (2)
  - Constipation [Unknown]
  - Pruritus [Unknown]
